FAERS Safety Report 25080935 (Version 1)
Quarter: 2025Q1

REPORT INFORMATION
  Report Type: Spontaneous
  Country: FR (occurrence: FR)
  Receive Date: 20250315
  Receipt Date: 20250315
  Transmission Date: 20250409
  Serious: Yes (Death)
  Sender: AUROBINDO
  Company Number: FR-AFSSAPS-RS2025000192

PATIENT
  Age: 89 Year
  Sex: Male
  Weight: 71 kg

DRUGS (7)
  1. ALPRAZOLAM [Interacting]
     Active Substance: ALPRAZOLAM
     Indication: Product used for unknown indication
     Dosage: 0.13 MILLIGRAM, ONCE A DAY
     Route: 048
  2. MIANSERIN HYDROCHLORIDE [Interacting]
     Active Substance: MIANSERIN HYDROCHLORIDE
     Indication: Aggression
     Dosage: 30 MILLIGRAM, ONCE A DAY
     Route: 048
     Dates: start: 20250208
  3. PREDNISONE [Interacting]
     Active Substance: PREDNISONE
     Indication: Pemphigoid
     Dosage: 14 MILLIGRAM, ONCE A DAY
     Route: 048
     Dates: start: 20241101
  4. BISOPROLOL [Interacting]
     Active Substance: BISOPROLOL
     Indication: Atrial fibrillation
     Dosage: 5 MILLIGRAM, ONCE A DAY
     Route: 048
     Dates: start: 20241001
  5. RISPERIDONE [Interacting]
     Active Substance: RISPERIDONE
     Indication: Agitation
     Route: 048
     Dates: start: 20250209, end: 20250209
  6. FENTANYL [Interacting]
     Active Substance: FENTANYL
     Indication: Pain
     Dosage: 50 MICROGRAM, ONCE A DAY(INTRODUCTION ON 01/27 AT 25 ?G/DAY, DOSAGE INCREASE ON 02/08)
     Route: 062
     Dates: start: 20250208
  7. ELIQUIS [Interacting]
     Active Substance: APIXABAN
     Indication: Atrial fibrillation
     Dosage: 5 MILLIGRAM, ONCE A DAY
     Route: 048
     Dates: start: 20241001

REACTIONS (2)
  - Fall [Fatal]
  - Haematoma [Fatal]

NARRATIVE: CASE EVENT DATE: 20250210
